FAERS Safety Report 16150299 (Version 1)
Quarter: 2019Q2

REPORT INFORMATION
  Report Type: Report from Study
  Country: KR (occurrence: KR)
  Receive Date: 20190403
  Receipt Date: 20190403
  Transmission Date: 20190711
  Serious: Yes (Hospitalization)
  Sender: FDA-Public Use
  Company Number: PHHY2019KR073757

PATIENT
  Age: 53 Year
  Sex: Male
  Weight: 87 kg

DRUGS (5)
  1. COSENTYX [Suspect]
     Active Substance: SECUKINUMAB
     Indication: PSORIASIS
     Dosage: 300 MG, UNK (SENSOREADY PEN)
     Route: 058
     Dates: start: 20190118, end: 20190215
  2. DAGES [Concomitant]
     Indication: GASTRITIS PROPHYLAXIS
     Dosage: 3 DF, QD
     Route: 065
     Dates: start: 20190216, end: 20190224
  3. LACIDOFIL [Concomitant]
     Active Substance: LACTOBACILLUS ACIDOPHILUS\LACTOBACILLUS RHAMNOSUS
     Indication: GASTRITIS PROPHYLAXIS
     Dosage: 2 DF, QD
     Dates: start: 20190216, end: 20190224
  4. NAXEN S [Concomitant]
     Indication: ANALGESIC THERAPY
     Dosage: 2 DF, QD
     Dates: start: 20190216, end: 20190224
  5. NAXEN S [Concomitant]
     Indication: INFLAMMATION

REACTIONS (3)
  - Cellulitis [Recovered/Resolved]
  - Pain in extremity [Recovered/Resolved]
  - Peripheral swelling [Recovered/Resolved]

NARRATIVE: CASE EVENT DATE: 20190211
